FAERS Safety Report 4506490-8 (Version None)
Quarter: 2004Q4

REPORT INFORMATION
  Report Type: 
  Country: None (occurrence: None)
  Receive Date: 20041122
  Receipt Date: 20041109
  Transmission Date: 20050328
  Serious: Yes (Hospitalization)
  Sender: FDA-Public Use
  Company Number: US-ABBOTT-04P-163-0280080-00

PATIENT
  Sex: Female
  Weight: 58.112 kg

DRUGS (6)
  1. HUMIRA [Suspect]
     Indication: RHEUMATOID ARTHRITIS
     Route: 058
     Dates: start: 20040101, end: 20041001
  2. HUMIRA [Suspect]
     Route: 058
     Dates: start: 20041109
  3. HYDROCODONE [Concomitant]
     Indication: POST PROCEDURAL PAIN
  4. POTASSIUM [Concomitant]
     Indication: MINERAL SUPPLEMENTATION
  5. IRON [Concomitant]
     Indication: MINERAL SUPPLEMENTATION
  6. TORSEMIDE [Concomitant]
     Indication: SWELLING

REACTIONS (2)
  - ARTHRALGIA [None]
  - DIFFICULTY IN WALKING [None]
